FAERS Safety Report 10713265 (Version 1)
Quarter: 2015Q1

REPORT INFORMATION
  Report Type: Spontaneous
  Country: JP (occurrence: JP)
  Receive Date: 20150115
  Receipt Date: 20150115
  Transmission Date: 20150721
  Serious: Yes (Hospitalization)
  Sender: FDA-Public Use
  Company Number: JP-PFIZER INC-2015005041

PATIENT
  Age: 44 Year
  Sex: Female
  Weight: 48.5 kg

DRUGS (10)
  1. EPLERENONE. [Suspect]
     Active Substance: EPLERENONE
     Indication: CARDIAC FAILURE
     Dosage: 25 MG, DAILY
     Route: 048
  2. LEVOFLOXACIN. [Concomitant]
     Active Substance: LEVOFLOXACIN
     Dosage: 500 MG, UNK
  3. ACETAMINOPHEN. [Concomitant]
     Active Substance: ACETAMINOPHEN
     Dosage: 600 MG, UNK
  4. CARPERITIDE [Concomitant]
     Active Substance: CARPERITIDE
     Route: 041
  5. DOMPERIDON /00498201/ [Concomitant]
     Dosage: 30 MG, UNK
     Route: 048
  6. TIARAMIDE [Concomitant]
     Active Substance: TIARAMIDE
     Dosage: 300 MG, UNK
     Route: 048
  7. BISOPROLOL [Concomitant]
     Active Substance: BISOPROLOL
     Indication: CARDIAC FAILURE
     Dosage: 1.25 MG, UNK
  8. CEFDITOREN [Suspect]
     Active Substance: CEFDITOREN
     Route: 048
  9. AZOSEMIDE [Suspect]
     Active Substance: AZOSEMIDE
     Indication: CARDIAC FAILURE
     Dosage: 30 MG, DAILY
     Route: 048
  10. THIAMAZOLE [Suspect]
     Active Substance: METHIMAZOLE
     Indication: BASEDOW^S DISEASE
     Dosage: 15 MG, DAILY
     Route: 048

REACTIONS (1)
  - Eosinophilic myocarditis [Recovered/Resolved]
